FAERS Safety Report 5782412-7 (Version None)
Quarter: 2008Q2

REPORT INFORMATION
  Report Type: 
  Country: None (occurrence: None)
  Receive Date: 20080623
  Receipt Date: 20080529
  Transmission Date: 20081010
  Serious: Yes (Other)
  Sender: FDA-Public Use
  Company Number: PHBS2007BR12742

PATIENT
  Age: 57 Year
  Sex: Female
  Weight: 60 kg

DRUGS (10)
  1. DIOVAN [Suspect]
     Indication: HYPERTENSION
     Dosage: 80 MG, QD
     Route: 048
  2. DIOVAN [Suspect]
     Dosage: 160 MG
  3. PONDERAL [Concomitant]
     Indication: DEPRESSION
     Dosage: 15 MG/DAY
     Route: 048
  4. DEPAKOTE [Concomitant]
     Indication: DEPRESSION
     Dosage: 500 MG/DAY
     Route: 048
  5. BUONA [Concomitant]
     Indication: HORMONE REPLACEMENT THERAPY
     Dosage: 60 MG, UNK
  6. PROPRANOLOL [Concomitant]
     Indication: TREMOR
     Dosage: 1 TABLET/DAY
     Route: 048
  7. CLONAZEPAM [Concomitant]
     Indication: TENSION
     Dosage: 2.5 MG/DAY
     Route: 048
  8. LITICAR [Concomitant]
     Indication: DEPRESSION
  9. CARBOLITIUM [Concomitant]
     Indication: DEPRESSION
  10. ARGININE [Concomitant]

REACTIONS (8)
  - BLOOD PRESSURE INCREASED [None]
  - DEPRESSION [None]
  - DIARRHOEA [None]
  - EMOTIONAL DISORDER [None]
  - FOOD CRAVING [None]
  - HALLUCINATION, VISUAL [None]
  - MEMORY IMPAIRMENT [None]
  - SOMNOLENCE [None]
